FAERS Safety Report 8846123 (Version 1)
Quarter: 2012Q4

REPORT INFORMATION
  Report Type: 
  Country: US (occurrence: US)
  Receive Date: 20121017
  Receipt Date: 20121017
  Transmission Date: 20130627
  Serious: Yes (Hospitalization)
  Sender: FDA-Public Use
  Company Number: US-ELI_LILLY_AND_COMPANY-US201206009374

PATIENT
  Age: 47 Year
  Sex: Female

DRUGS (17)
  1. FORTEO [Suspect]
     Indication: OSTEOPOROSIS
     Dosage: UNK, qd
     Route: 065
     Dates: start: 20120524
  2. FORTEO [Suspect]
     Dosage: 20 ug, qd
     Route: 065
  3. FORTEO [Suspect]
     Dosage: 20 ug, qd
  4. FORTEO [Suspect]
     Dosage: 20 ug, qd
     Dates: start: 20120628
  5. COUMADIN [Concomitant]
     Indication: COAGULOPATHY
     Dosage: 2 mg, 4/W
  6. COUMADIN [Concomitant]
     Dosage: 1 mg, 3/W
  7. VITAMIN D [Concomitant]
     Dosage: 50000 IU, weekly (1/W)
  8. CALCIUM 500+D [Concomitant]
     Dosage: UNK, qd
  9. PLAQUENIL [Concomitant]
     Dosage: 400 mg, qd
  10. ATIVAN [Concomitant]
     Dosage: 2 mg, qd
  11. LUNESTA [Concomitant]
     Dosage: 3 mg, qd
  12. POTASSIUM [Concomitant]
     Dosage: 10 mEq, qd
  13. SYNTHROID [Concomitant]
     Dosage: 0.75 mg, qd
  14. REQUIP [Concomitant]
     Dosage: 1 mg, qd
  15. SIMVASTATIN [Concomitant]
     Dosage: 40 mg, UNK
  16. PREDNISONE [Concomitant]
     Dosage: 7 mg, qd
  17. ULTRAM [Concomitant]
     Dosage: 300 mg, other

REACTIONS (9)
  - Intervertebral disc compression [Unknown]
  - Post procedural complication [Unknown]
  - Feeling abnormal [Unknown]
  - Muscle spasms [Unknown]
  - Incorrect storage of drug [Unknown]
  - Laboratory test abnormal [Unknown]
  - Skeletal injury [Unknown]
  - Abdominal hernia [Not Recovered/Not Resolved]
  - Body height decreased [Unknown]
